FAERS Safety Report 8979994 (Version 1)
Quarter: 2012Q4

REPORT INFORMATION
  Report Type: Report from Study
  Country: ES (occurrence: ES)
  Receive Date: 20121221
  Receipt Date: 20121221
  Transmission Date: 20130627
  Serious: Yes (Hospitalization)
  Sender: FDA-Public Use
  Company Number: ES-ASTELLAS-2012EU010990

PATIENT
  Age: 63 Year
  Sex: Male
  Weight: 76.3 kg

DRUGS (9)
  1. PROGRAF [Suspect]
     Dosage: 2 mg, bid
     Route: 048
     Dates: start: 20030514
  2. MYCOPHENOLATE MOFETIL [Suspect]
     Indication: PROPHYLAXIS AGAINST TRANSPLANT REJECTION
     Dosage: 1 g, bid
     Route: 048
     Dates: start: 20030514
  3. DACLIZUMAB [Suspect]
     Indication: PROPHYLAXIS AGAINST TRANSPLANT REJECTION
     Dosage: 150 mg, Unknown/D
     Route: 042
     Dates: start: 20030514
  4. CORTICOSTEROID NOS [Suspect]
     Indication: PROPHYLAXIS AGAINST TRANSPLANT REJECTION
     Dosage: UNK
     Route: 065
  5. CARVEDILOL [Concomitant]
     Dosage: 25 mg, Unknown/D
     Route: 048
     Dates: start: 20030808
  6. ATORVASTAN [Concomitant]
     Dosage: 10 mg, Unknown/D
     Route: 048
     Dates: start: 20030715
  7. ATORVASTAN [Concomitant]
     Dosage: 20 mg, Unknown/D
     Route: 048
     Dates: start: 20030822
  8. ASPIRIN [Concomitant]
     Dosage: 100 mg, UID/QD
     Route: 048
     Dates: start: 20030527
  9. AMLODIPINE [Concomitant]
     Dosage: 10 mg, UID/QD
     Route: 048

REACTIONS (1)
  - Transient ischaemic attack [Recovered/Resolved]
